FAERS Safety Report 7541527-3 (Version None)
Quarter: 2011Q2

REPORT INFORMATION
  Report Type: 
  Country: None (occurrence: None)
  Receive Date: 20110613
  Receipt Date: 20110608
  Transmission Date: 20111010
  Serious: Yes (Hospitalization)
  Sender: FDA-Public Use
  Company Number: US-BRISTOL-MYERS SQUIBB COMPANY-15813728

PATIENT
  Age: 63 Year
  Sex: Female

DRUGS (4)
  1. PREDNISONE [Concomitant]
  2. ORENCIA [Suspect]
     Dates: end: 20110401
  3. REMICADE [Concomitant]
  4. METHOTREXATE [Concomitant]

REACTIONS (5)
  - BACTERIAL INFECTION [None]
  - RENAL FAILURE CHRONIC [None]
  - DRUG EFFECT DECREASED [None]
  - FATIGUE [None]
  - PNEUMONIA [None]
